FAERS Safety Report 8055144-2 (Version None)
Quarter: 2012Q1

REPORT INFORMATION
  Report Type: 
  Country: None (occurrence: None)
  Receive Date: 20120119
  Receipt Date: 20120110
  Transmission Date: 20120608
  Serious: Yes (Hospitalization)
  Sender: FDA-Public Use
  Company Number: US-BRISTOL-MYERS SQUIBB COMPANY-16341968

PATIENT
  Age: 63 Year
  Sex: Male

DRUGS (3)
  1. KOMBIGLYZE XR [Suspect]
     Dosage: KOMBIGLYZE XR 5/500
  2. ALTACE [Concomitant]
  3. METFORMIN HCL [Suspect]

REACTIONS (2)
  - PANCYTOPENIA [None]
  - VITAMIN B12 DEFICIENCY [None]
